FAERS Safety Report 5140814-6 (Version None)
Quarter: 2006Q4

REPORT INFORMATION
  Report Type: 
  Country: None (occurrence: None)
  Receive Date: 20061026
  Receipt Date: 20061009
  Transmission Date: 20070319
  Serious: Yes (Hospitalization)
  Sender: FDA-Public Use
  Company Number: 2006SP004102

PATIENT
  Age: 48 Year
  Sex: Male

DRUGS (2)
  1. PEG-INTRON [Suspect]
     Indication: HEPATITIS C VIRUS
     Dates: start: 20060401
  2. REBETOL [Suspect]
     Indication: HEPATITIS C VIRUS
     Dates: start: 20060401

REACTIONS (1)
  - ARTHRITIS [None]
